FAERS Safety Report 8970104 (Version 1)
Quarter: 2012Q4

REPORT INFORMATION
  Report Type: 
  Country: AU (occurrence: AU)
  Receive Date: 20121218
  Receipt Date: 20121218
  Transmission Date: 20130627
  Serious: Yes (Death, Hospitalization, Other)
  Sender: FDA-Public Use
  Company Number: AU-PFIZER INC-2012316902

PATIENT
  Age: 32 Year
  Sex: Male

DRUGS (1)
  1. PHENYTOIN [Suspect]
     Indication: SEIZURES
     Dosage: 300 mg/day

REACTIONS (10)
  - Drug reaction with eosinophilia and systemic symptoms [Fatal]
  - Respiratory failure [Fatal]
  - Hypotension [Fatal]
  - Haemorrhage [Unknown]
  - Diarrhoea [Not Recovered/Not Resolved]
  - Rash papular [Unknown]
  - Hepatitis [Unknown]
  - Pyrexia [Unknown]
  - Mouth ulceration [Unknown]
  - Productive cough [Unknown]
